FAERS Safety Report 20802968 (Version 4)
Quarter: 2022Q4

REPORT INFORMATION
  Report Type: Spontaneous
  Country: US (occurrence: US)
  Receive Date: 20220509
  Receipt Date: 20221206
  Transmission Date: 20230112
  Serious: Yes (Other)
  Sender: FDA-Public Use
  Company Number: US-BRISTOL-MYERS SQUIBB COMPANY-2022-032703

PATIENT
  Age: 80 Year
  Sex: Male

DRUGS (1)
  1. REVLIMID [Suspect]
     Active Substance: LENALIDOMIDE
     Indication: Plasma cell myeloma
     Dosage: ON DAYS 1-14, FOLLOWED BY A 14-DAY BREAK TAKE 1 CAPSULE BY MOUTH DAILY ON DAYS 1-14, WITH A 14 DAY B
     Route: 048
     Dates: start: 20220604

REACTIONS (5)
  - Osteomyelitis [Recovered/Resolved]
  - Pathological fracture [Unknown]
  - Off label use [Unknown]
  - Tooth infection [Unknown]
  - Infection [Unknown]
